FAERS Safety Report 4654279-1 (Version None)
Quarter: 2005Q2

REPORT INFORMATION
  Report Type: 
  Country: None (occurrence: None)
  Receive Date: 20050404
  Receipt Date: 20041210
  Transmission Date: 20051028
  Serious: No
  Sender: FDA-Public Use
  Company Number: USA041285816

PATIENT
  Age: 76 Year
  Sex: Male
  Weight: 100 kg

DRUGS (11)
  1. CYMBALTA [Suspect]
     Indication: NEUROPATHY
     Dosage: 60 MG
     Dates: start: 20041101
  2. GLUCOVANCE [Concomitant]
  3. ACTOS [Concomitant]
  4. VASOTEC [Concomitant]
  5. HYTRIN [Concomitant]
  6. PROTONIX [Concomitant]
  7. PRAVACHOL [Concomitant]
  8. GLUCOSAMINE [Concomitant]
  9. GARLIC [Concomitant]
  10. MULTI-VITAMIN [Concomitant]
  11. OCUVITE [Concomitant]

REACTIONS (4)
  - DIZZINESS [None]
  - DRUG INEFFECTIVE [None]
  - FAECES DISCOLOURED [None]
  - FEELING ABNORMAL [None]
